FAERS Safety Report 10264379 (Version 1)
Quarter: 2014Q2

REPORT INFORMATION
  Report Type: Spontaneous
  Country: IT (occurrence: IT)
  Receive Date: 20140627
  Receipt Date: 20140627
  Transmission Date: 20141212
  Serious: Yes (Other)
  Sender: FDA-Public Use
  Company Number: IT-ASTRAZENECA-2014SE45622

PATIENT
  Age: 19925 Day
  Sex: Male

DRUGS (7)
  1. BRILIQUE [Suspect]
     Indication: STENT PLACEMENT
     Route: 048
  2. PANTORC [Concomitant]
  3. CARDIOASPIRIN [Concomitant]
  4. METOPROLOL ACCORD [Concomitant]
  5. ENAPREN [Concomitant]
  6. LUVION [Concomitant]
  7. ATORVASTATINA ACTAVIS [Concomitant]

REACTIONS (2)
  - Dermatitis bullous [Recovering/Resolving]
  - Dermatitis exfoliative [Recovering/Resolving]
